FAERS Safety Report 7509678-7 (Version None)
Quarter: 2011Q2

REPORT INFORMATION
  Report Type: 
  Country: None (occurrence: None)
  Receive Date: 20110527
  Receipt Date: 20110517
  Transmission Date: 20111010
  Serious: Yes (Other)
  Sender: FDA-Public Use
  Company Number: AU-JNJFOC-20110509941

PATIENT
  Sex: Female

DRUGS (7)
  1. STELARA [Suspect]
     Route: 058
     Dates: start: 20100908
  2. STELARA [Suspect]
     Route: 058
     Dates: start: 20101126
  3. STELARA [Suspect]
     Route: 058
     Dates: start: 20110517
  4. STELARA [Suspect]
     Indication: PSORIASIS
     Route: 058
     Dates: start: 20100513
  5. STELARA [Suspect]
     Route: 058
     Dates: start: 20110223
  6. LEVOTHYROXINE SODIUM [Concomitant]
  7. STELARA [Suspect]
     Route: 058
     Dates: start: 20100610

REACTIONS (2)
  - FOOD ALLERGY [None]
  - DIABETES MELLITUS [None]
